FAERS Safety Report 7980004 (Version 2)
Quarter: 2012Q4

REPORT INFORMATION
  Report Type: Report from Study
  Country: US (occurrence: US)
  Receive Date: 20110608
  Receipt Date: 20120912
  Transmission Date: 20130627
  Serious: Yes (Hospitalization)
  Sender: FDA-Public Use
  Company Number: US-JNJFOC-20110600220

PATIENT
  Sex: Female
  Weight: 30.1 kg

DRUGS (8)
  1. REMICADE [Suspect]
     Indication: COLITIS ULCERATIVE
     Route: 042
     Dates: start: 20100716, end: 20101022
  2. 5-ASA [Concomitant]
  3. ANTIBIOTICS [Concomitant]
     Indication: INFLAMMATORY BOWEL DISEASE
  4. NEXIUM [Concomitant]
  5. PERIACTIN [Concomitant]
  6. PROBIOTICS [Concomitant]
  7. MULTIVITAMINS [Concomitant]
  8. MUPIROCIN [Concomitant]

REACTIONS (1)
  - Colitis ulcerative [Unknown]
